FAERS Safety Report 4911996-3 (Version None)
Quarter: 2006Q1

REPORT INFORMATION
  Report Type: 
  Country: None (occurrence: None)
  Receive Date: 20060213
  Receipt Date: 20060126
  Transmission Date: 20060701
  Serious: Yes (Hospitalization)
  Sender: FDA-Public Use
  Company Number: 2006000221

PATIENT
  Age: 53 Year
  Sex: Male

DRUGS (2)
  1. TARCEVA [Suspect]
     Indication: BRONCHIAL CARCINOMA
     Dosage: 150 MG (QD), ORAL
     Route: 048
     Dates: start: 20051226
  2. TARCEVA [Suspect]
     Indication: BRONCHIAL CARCINOMA
     Dosage: 150 MG (QD), ORAL
     Route: 048
     Dates: start: 20060111

REACTIONS (4)
  - ABDOMINAL DISTENSION [None]
  - CONSTIPATION [None]
  - LIPASE INCREASED [None]
  - SKIN TOXICITY [None]
